FAERS Safety Report 4921355-5 (Version None)
Quarter: 2006Q1

REPORT INFORMATION
  Report Type: 
  Country: None (occurrence: None)
  Receive Date: 20060221
  Receipt Date: 20060206
  Transmission Date: 20060701
  Serious: Yes (Life-Threatening)
  Sender: FDA-Public Use
  Company Number: 216758

PATIENT
  Age: 55 Year
  Sex: Male
  Weight: 80 kg

DRUGS (4)
  1. AVASTIN [Suspect]
     Indication: COLON CANCER
     Dosage: 400 MG, Q2W, INTRAVENOUS
     Route: 042
     Dates: start: 20050606, end: 20050719
  2. OXALIPLATIN (OXALIPLATIN) [Suspect]
     Indication: COLON CANCER
     Dosage: 150 MG, Q2W, INTRAVENOUS
     Route: 042
     Dates: start: 20050606, end: 20050719
  3. FLUOROURACIL [Suspect]
     Indication: COLON CANCER
     Dosage: SEE IMAGE
     Route: 042
     Dates: start: 20050606, end: 20050719
  4. LEUCOVORIN CALCIUM [Suspect]
     Indication: COLON CANCER
     Dosage: 400 MG, QDX2D/14DC, INTRAVENOUS
     Route: 042
     Dates: start: 20050606, end: 20050719

REACTIONS (3)
  - APPENDICITIS PERFORATED [None]
  - IRRITABLE BOWEL SYNDROME [None]
  - PERITONITIS [None]
